FAERS Safety Report 14078616 (Version 3)
Quarter: 2017Q4

REPORT INFORMATION
  Report Type: Spontaneous
  Country: FR (occurrence: CH)
  Receive Date: 20171012
  Receipt Date: 20171026
  Transmission Date: 20180321
  Serious: Yes (Other)
  Sender: FDA-Public Use
  Company Number: FR-009507513-1710GBR004291

PATIENT
  Sex: Female

DRUGS (1)
  1. IMPLANON [Suspect]
     Active Substance: ETONOGESTREL
     Dosage: 1 DF, UNK
     Route: 059

REACTIONS (7)
  - Factor V Leiden mutation [Unknown]
  - Migration of implanted drug [Unknown]
  - Difficulty removing drug implant [Unknown]
  - Migraine [Unknown]
  - Lipoedema [Unknown]
  - Weight increased [Unknown]
  - Implant site pain [Unknown]

NARRATIVE: CASE EVENT DATE: 2013
